FAERS Safety Report 4439303-3 (Version None)
Quarter: 2004Q3

REPORT INFORMATION
  Report Type: 
  Country: None (occurrence: None)
  Receive Date: 20040831
  Receipt Date: 20040818
  Transmission Date: 20050211
  Serious: Yes (Hospitalization)
  Sender: FDA-Public Use
  Company Number: 175459

PATIENT
  Sex: Female

DRUGS (1)
  1. AVONEX [Suspect]
     Indication: MULTIPLE SCLEROSIS
     Dates: start: 20010101, end: 20030101

REACTIONS (11)
  - ANEURYSM [None]
  - ANKLE FRACTURE [None]
  - BLINDNESS TRANSIENT [None]
  - FALL [None]
  - HEADACHE [None]
  - HEARING IMPAIRED [None]
  - MIGRAINE [None]
  - MULTIPLE SCLEROSIS [None]
  - SPEECH DISORDER [None]
  - VOMITING [None]
  - WEIGHT DECREASED [None]
